FAERS Safety Report 5362100-1 (Version None)
Quarter: 2007Q2

REPORT INFORMATION
  Report Type: 
  Country: None (occurrence: None)
  Receive Date: 20070615
  Receipt Date: 20070615
  Transmission Date: 20071010
  Serious: Yes (Hospitalization)
  Sender: FDA-Public Use
  Company Number: None

PATIENT
  Sex: Male
  Weight: 62.4 kg

DRUGS (7)
  1. CETUXIMAB [Suspect]
     Indication: GASTROINTESTINAL CARCINOMA
     Dosage: 432MG WEEKLY IV
     Route: 042
     Dates: start: 20070315
  2. CETUXIMAB [Suspect]
     Indication: OESOPHAGEAL CARCINOMA
     Dosage: 432MG WEEKLY IV
     Route: 042
     Dates: start: 20070315
  3. NEXIUM [Concomitant]
  4. METFORMIN HCL [Concomitant]
  5. GLYBURIDE [Concomitant]
  6. ZOCOR [Concomitant]
  7. DIGOXIN [Concomitant]

REACTIONS (2)
  - HYDRONEPHROSIS [None]
  - HYPERNATRAEMIA [None]
